FAERS Safety Report 23890433 (Version 2)
Quarter: 2024Q2

REPORT INFORMATION
  Report Type: Spontaneous
  Country: US (occurrence: US)
  Receive Date: 20240523
  Receipt Date: 20240607
  Transmission Date: 20240716
  Serious: Yes (Other)
  Sender: FDA-Public Use
  Company Number: US-TEVA-VS-3200407

PATIENT
  Age: 65 Year
  Sex: Female

DRUGS (4)
  1. PREDNISONE [Suspect]
     Active Substance: PREDNISONE
     Indication: Sjogren^s syndrome
     Dosage: CONTAINING WHEAT STARCH
     Route: 065
     Dates: start: 202011
  2. CALCIUM CITRATE [Concomitant]
     Active Substance: CALCIUM CITRATE
     Indication: Supplementation therapy
     Route: 065
  3. ABALOPARATIDE [Concomitant]
     Active Substance: ABALOPARATIDE
     Indication: Osteoporosis
     Route: 065
     Dates: start: 202010
  4. VITAMIN D3 [Concomitant]
     Active Substance: CHOLECALCIFEROL
     Indication: Supplementation therapy
     Route: 065

REACTIONS (4)
  - Coeliac disease [Recovered/Resolved]
  - Hyperparathyroidism secondary [Recovered/Resolved]
  - Malabsorption [Recovered/Resolved]
  - Product dispensing error [Unknown]
